FAERS Safety Report 18409791 (Version 1)
Quarter: 2020Q4

REPORT INFORMATION
  Report Type: Spontaneous
  Country: US (occurrence: US)
  Receive Date: 20201021
  Receipt Date: 20201021
  Transmission Date: 20210114
  Serious: Yes (Hospitalization)
  Sender: FDA-Public Use
  Company Number: None

PATIENT
  Age: 19 Year
  Sex: Female

DRUGS (2)
  1. LAMOTRIGINE EXTENDED RELEASE [Suspect]
     Active Substance: LAMOTRIGINE
     Route: 048
     Dates: start: 20201005, end: 20201020
  2. LAMOTRIGINE ER 20MG [Concomitant]
     Dates: start: 20201001, end: 20201020

REACTIONS (3)
  - Product substitution issue [None]
  - Seizure [None]
  - Heart rate increased [None]

NARRATIVE: CASE EVENT DATE: 20201019
